FAERS Safety Report 9218256 (Version 1)
Quarter: 2013Q2

REPORT INFORMATION
  Report Type: Spontaneous
  Country: US (occurrence: US)
  Receive Date: 20130408
  Receipt Date: 20130408
  Transmission Date: 20140414
  Serious: Yes (Death)
  Sender: FDA-Public Use
  Company Number: US-BRISTOL-MYERS SQUIBB COMPANY-18732768

PATIENT
  Age: 87 Year
  Sex: Male

DRUGS (1)
  1. SPRYCEL [Suspect]
     Dosage: STRENGTH:140MG
     Route: 048

REACTIONS (1)
  - Death [Fatal]
